FAERS Safety Report 5124493-X (Version None)
Quarter: 2006Q4

REPORT INFORMATION
  Report Type: 
  Country: None (occurrence: None)
  Receive Date: 20060821
  Receipt Date: 20060629
  Transmission Date: 20070319
  Serious: No
  Sender: FDA-Public Use
  Company Number: TPA2006A00657

PATIENT
  Sex: Male

DRUGS (19)
  1. ROZEREM [Suspect]
     Indication: INSOMNIA
     Dosage: 8 MG, QHS, PER ORAL
     Route: 048
     Dates: start: 20060205, end: 20060504
  2. NEURONTIN [Concomitant]
  3. PROVIGIL [Concomitant]
  4. CYMBALTA [Concomitant]
  5. ZOLOFT [Concomitant]
  6. ABILIFY [Concomitant]
  7. LAMICTAL (LAMOTROGINE) [Concomitant]
  8. SEROQUEL [Concomitant]
  9. AVANDIA [Concomitant]
  10. NEXIUM [Concomitant]
  11. GLUCOPHAGE [Concomitant]
  12. PRINIVIL [Concomitant]
  13. ZOCOR [Concomitant]
  14. LIDODERM PATCH (LIDOCAINE) (POULTICE OR PATCH) [Concomitant]
  15. ATARAX [Concomitant]
  16. MULTI-VITAMINS [Concomitant]
  17. SENOKOT (SENNA ALEXANDRINA) [Concomitant]
  18. COLACE (DOCUSATE SODIUM) [Concomitant]
  19. CHONDROITIN/GLUCOSAMINE (GLUCOSAMINE, CHONDROITIN SULFATE) [Concomitant]

REACTIONS (1)
  - VASCULITIS [None]
